FAERS Safety Report 25265661 (Version 2)
Quarter: 2025Q2

REPORT INFORMATION
  Report Type: Spontaneous
  Country: PT (occurrence: PT)
  Receive Date: 20250503
  Receipt Date: 20250519
  Transmission Date: 20250717
  Serious: Yes (Life-Threatening, Hospitalization, Other)
  Sender: AUROBINDO
  Company Number: PT-MLMSERVICE-20250415-PI481999-00052-1

PATIENT
  Age: 90 Year
  Sex: Female

DRUGS (1)
  1. AMOXICILLIN\CLAVULANIC ACID [Suspect]
     Active Substance: AMOXICILLIN\CLAVULANIC ACID
     Indication: Cellulitis
     Route: 042

REACTIONS (3)
  - Cardio-respiratory arrest [Recovered/Resolved]
  - Pulseless electrical activity [Recovered/Resolved]
  - Anaphylactic reaction [Recovered/Resolved]
